FAERS Safety Report 24178227 (Version 1)
Quarter: 2024Q3

REPORT INFORMATION
  Report Type: Spontaneous
  Country: US (occurrence: US)
  Receive Date: 20240806
  Receipt Date: 20240806
  Transmission Date: 20241017
  Serious: Yes (Life-Threatening)
  Sender: BAYER
  Company Number: US-BAYER-2024A111100

PATIENT

DRUGS (5)
  1. ALEVE [Suspect]
     Active Substance: NAPROXEN SODIUM
  2. CIPROFLOXACIN [Concomitant]
     Active Substance: CIPROFLOXACIN
  3. LEVAQUIN [Suspect]
     Active Substance: LEVOFLOXACIN
  4. AVELOX [Concomitant]
     Active Substance: MOXIFLOXACIN HYDROCHLORIDE
  5. FLOXIN [Concomitant]
     Active Substance: OFLOXACIN

REACTIONS (2)
  - Toxicity to various agents [Unknown]
  - Pain [None]
